FAERS Safety Report 5521845-0 (Version None)
Quarter: 2007Q4

REPORT INFORMATION
  Report Type: 
  Country: None (occurrence: None)
  Receive Date: 20071120
  Receipt Date: 20071109
  Transmission Date: 20080405
  Serious: Yes (Hospitalization)
  Sender: FDA-Public Use
  Company Number: US-ROCHE-511175

PATIENT
  Age: 55 Year
  Sex: Male

DRUGS (10)
  1. PEGASYS [Suspect]
     Route: 058
     Dates: start: 20070420
  2. COPEGUS [Suspect]
     Route: 065
     Dates: start: 20070420
  3. XANAX [Concomitant]
  4. HYDROCODONE BITARTRATE [Concomitant]
  5. ZYPREXA [Concomitant]
  6. LITHIUM CARBONATE [Concomitant]
  7. NORVASC [Concomitant]
  8. ACCUPRIL [Concomitant]
  9. MILK THISTLE [Concomitant]
  10. ADVAIR DISKUS 100/50 [Concomitant]

REACTIONS (7)
  - BRONCHITIS CHRONIC [None]
  - CHRONIC OBSTRUCTIVE PULMONARY DISEASE [None]
  - DEVICE MALFUNCTION [None]
  - DYSPNOEA [None]
  - HAEMOGLOBIN DECREASED [None]
  - PNEUMONITIS [None]
  - WRONG TECHNIQUE IN DRUG USAGE PROCESS [None]
